FAERS Safety Report 7370784-1 (Version None)
Quarter: 2011Q1

REPORT INFORMATION
  Report Type: 
  Country: None (occurrence: None)
  Receive Date: 20110324
  Receipt Date: 20110315
  Transmission Date: 20110831
  Serious: Yes (Hospitalization)
  Sender: FDA-Public Use
  Company Number: DE-BIOGENIDEC-2009BI026444

PATIENT
  Age: 42 Year
  Sex: Male
  Weight: 78 kg

DRUGS (4)
  1. TYSABRI [Suspect]
     Route: 042
     Dates: start: 20091003
  2. TYSABRI [Suspect]
     Indication: MULTIPLE SCLEROSIS
     Route: 042
     Dates: start: 20080808, end: 20090711
  3. FOLIC ACID [Concomitant]
  4. IRON [Concomitant]

REACTIONS (2)
  - FALL [None]
  - ARTERIAL INJURY [None]
